FAERS Safety Report 21564415 (Version 2)
Quarter: 2022Q4

REPORT INFORMATION
  Report Type: Report from Study
  Country: CA (occurrence: CA)
  Receive Date: 20221108
  Receipt Date: 20221118
  Transmission Date: 20230113
  Serious: Yes (Other)
  Sender: FDA-Public Use
  Company Number: CA-JNJFOC-20220514003

PATIENT
  Age: 32 Year
  Sex: Male

DRUGS (3)
  1. REMICADE [Suspect]
     Active Substance: INFLIXIMAB
     Indication: Crohn^s disease
     Dosage: THE INFUSION WAS POSTPONED UNTIL 13-MAY-2022.?DOSE-430MG, EXPIRY DATE: 31-DEC-2024?BATCH NUMBER: 5XL
     Route: 042
     Dates: start: 20090309
  2. REMICADE [Suspect]
     Active Substance: INFLIXIMAB
     Route: 042
  3. REMICADE [Suspect]
     Active Substance: INFLIXIMAB
     Route: 042

REACTIONS (7)
  - Autism spectrum disorder [Unknown]
  - COVID-19 [Recovered/Resolved]
  - Chronic sinusitis [Not Recovered/Not Resolved]
  - Viral infection [Recovering/Resolving]
  - Ear infection [Unknown]
  - Pregnancy of partner [Recovered/Resolved]
  - Inappropriate schedule of product administration [Unknown]

NARRATIVE: CASE EVENT DATE: 20211001
